FAERS Safety Report 22044984 (Version 2)
Quarter: 2023Q1

REPORT INFORMATION
  Report Type: Report from Study
  Country: US (occurrence: US)
  Receive Date: 20230228
  Receipt Date: 20230331
  Transmission Date: 20230417
  Serious: Yes (Other)
  Sender: FDA-Public Use
  Company Number: US-ABBVIE-4316207

PATIENT
  Age: 61 Year
  Sex: Male
  Weight: 92 kg

DRUGS (10)
  1. HUMIRA [Suspect]
     Active Substance: ADALIMUMAB
     Indication: Colitis ulcerative
     Dosage: FORM STRENGTH: 40 MILLIGRAM
     Route: 058
     Dates: start: 20220101
  2. HUMIRA [Suspect]
     Active Substance: ADALIMUMAB
     Route: 058
  3. SIMVASTATIN [Concomitant]
     Active Substance: SIMVASTATIN
     Indication: Hypertension
  4. METRONIDAZOLE [Concomitant]
     Active Substance: METRONIDAZOLE
     Indication: Tooth disorder
  5. MESALAMINE [Concomitant]
     Active Substance: MESALAMINE
     Indication: Internal haemorrhage
  6. ASPIRIN [Concomitant]
     Active Substance: ASPIRIN
     Indication: Product used for unknown indication
  7. CLARITIN [Concomitant]
     Active Substance: LORATADINE
     Indication: Hypersensitivity
  8. LISINOPRIL [Concomitant]
     Active Substance: LISINOPRIL
     Indication: Hypertension
  9. AMOXICILLIN [Concomitant]
     Active Substance: AMOXICILLIN
     Indication: Tooth disorder
  10. METOPROLOL [Concomitant]
     Active Substance: METOPROLOL
     Indication: Hypertension

REACTIONS (9)
  - Internal haemorrhage [Recovering/Resolving]
  - Swelling face [Recovering/Resolving]
  - Tooth disorder [Recovering/Resolving]
  - Toothache [Recovering/Resolving]
  - Speech disorder [Recovering/Resolving]
  - Haemorrhoids [Recovering/Resolving]
  - Pain in jaw [Recovering/Resolving]
  - Endodontic procedure [Recovering/Resolving]
  - Cyst [Unknown]

NARRATIVE: CASE EVENT DATE: 20230101
